FAERS Safety Report 14798548 (Version 1)
Quarter: 2018Q2

REPORT INFORMATION
  Report Type: Spontaneous
  Country: FR (occurrence: FR)
  Receive Date: 20180424
  Receipt Date: 20180424
  Transmission Date: 20180711
  Serious: Yes (Other)
  Sender: FDA-Public Use
  Company Number: FR-MERCK KGAA-2046352

PATIENT
  Age: 58 Year
  Sex: Female

DRUGS (1)
  1. NOVOTHYROX [Suspect]
     Active Substance: LEVOTHYROXINE SODIUM
     Indication: PRODUCT USED FOR UNKNOWN INDICATION
     Dates: end: 2017

REACTIONS (14)
  - Insomnia [None]
  - Cortisol increased [None]
  - Blood pressure abnormal [None]
  - Gamma-glutamyltransferase increased [None]
  - Myalgia [None]
  - Irritability [None]
  - Blood triglycerides increased [None]
  - Fatigue [None]
  - Hyperhidrosis [None]
  - Muscle spasms [None]
  - Hypertension [None]
  - Gastrointestinal disorder [None]
  - Diarrhoea [None]
  - Anxiety [None]

NARRATIVE: CASE EVENT DATE: 20170214
